FAERS Safety Report 20318676 (Version 1)
Quarter: 2022Q1

REPORT INFORMATION
  Report Type: Spontaneous
  Country: US (occurrence: US)
  Receive Date: 20220110
  Receipt Date: 20220110
  Transmission Date: 20220424
  Serious: Yes (Other)
  Sender: FDA-Public Use
  Company Number: US-TAKEDA-2022TUS001027

PATIENT
  Sex: Female

DRUGS (1)
  1. VYVANSE [Suspect]
     Active Substance: LISDEXAMFETAMINE DIMESYLATE
     Indication: Product used for unknown indication
     Route: 065

REACTIONS (7)
  - Intracranial aneurysm [Unknown]
  - Impaired gastric emptying [Unknown]
  - Malaise [Unknown]
  - Contusion [Unknown]
  - Illness [Unknown]
  - Therapy interrupted [Unknown]
  - Eye pain [Unknown]

NARRATIVE: CASE EVENT DATE: 20210607
